FAERS Safety Report 9949569 (Version 1)
Quarter: 2014Q1

REPORT INFORMATION
  Report Type: Spontaneous
  Country: US (occurrence: US)
  Receive Date: 20140304
  Receipt Date: 20140304
  Transmission Date: 20141002
  Serious: No
  Sender: FDA-Public Use
  Company Number: US-PFIZER INC-2014060189

PATIENT
  Age: 54 Year
  Sex: Female
  Weight: 54.42 kg

DRUGS (5)
  1. ADRIAMYCIN [Suspect]
     Indication: BREAST CANCER FEMALE
     Dosage: UNK
     Dates: start: 20140204
  2. CYTOXAN [Interacting]
     Indication: BREAST CANCER FEMALE
     Dosage: UNK
     Dates: start: 20140204
  3. PROAIR HFA [Concomitant]
     Indication: HYPERSENSITIVITY
     Dosage: UNK
  4. ONDANSETRON [Concomitant]
     Indication: NAUSEA
     Dosage: UNK
  5. DOCUSATE [Concomitant]
     Indication: CONSTIPATION
     Dosage: UNK

REACTIONS (5)
  - Peripheral embolism [Recovering/Resolving]
  - Poor peripheral circulation [Recovering/Resolving]
  - Full blood count decreased [Unknown]
  - Pain in extremity [Recovering/Resolving]
  - Drug interaction [Unknown]
